FAERS Safety Report 14473421 (Version 2)
Quarter: 2018Q2

REPORT INFORMATION
  Report Type: Spontaneous
  Country: US (occurrence: US)
  Receive Date: 20180201
  Receipt Date: 20180531
  Transmission Date: 20180711
  Serious: Yes (Other)
  Sender: FDA-Public Use
  Company Number: US-BAYER-2018-020662

PATIENT
  Age: 36 Year
  Sex: Female

DRUGS (3)
  1. MIRENA [Suspect]
     Active Substance: LEVONORGESTREL
     Indication: CONTRACEPTION
     Dosage: 20 MCG/24HR, CONT
     Route: 015
     Dates: start: 20171214, end: 20180111
  2. PROVIGIL [Concomitant]
     Active Substance: MODAFINIL
     Dosage: 100 MG, ONCE
     Route: 048
  3. DOXYCYCLINE MONOHYDRATE [DOXYCYCLINE MONOHYDRATE] [Concomitant]
     Dosage: 100 MG, ONCE
     Route: 048

REACTIONS (4)
  - Abdominal pain lower [None]
  - Pelvic pain [None]
  - Device dislocation [None]
  - Genital haemorrhage [None]

NARRATIVE: CASE EVENT DATE: 20180111
